FAERS Safety Report 6189630-7 (Version None)
Quarter: 2009Q2

REPORT INFORMATION
  Report Type: 
  Country: None (occurrence: None)
  Receive Date: 20090512
  Receipt Date: 20090428
  Transmission Date: 20091009
  Serious: Yes (Disabling, Other)
  Sender: FDA-Public Use
  Company Number: DSM-2009-00565

PATIENT
  Age: 80 Year
  Sex: Female
  Weight: 60 kg

DRUGS (2)
  1. OLMESARTAN MEDOXOMIL [Suspect]
     Indication: HYPERTENSION
     Dosage: 20 MG (1 D),ORAL
     Route: 048
     Dates: start: 20070501, end: 20090414
  2. ATENOLOL                  (ATENOLOL) (50) [Suspect]
     Indication: HYPERTENSION
     Dosage: 100 (50 ,2 IN 1 D), ORAL
     Route: 048

REACTIONS (1)
  - POLYARTHRITIS [None]
